FAERS Safety Report 10434092 (Version 2)
Quarter: 2014Q3

REPORT INFORMATION
  Report Type: Spontaneous
  Country: FR (occurrence: FR)
  Receive Date: 20140905
  Receipt Date: 20140905
  Transmission Date: 20150326
  Serious: Yes (Death, Other)
  Sender: FDA-Public Use
  Company Number: FR-ELI_LILLY_AND_COMPANY-FR201405007841

PATIENT
  Sex: Male
  Weight: 66 kg

DRUGS (8)
  1. ALIMTA [Suspect]
     Active Substance: PEMETREXED DISODIUM
     Dosage: 675 MG, UNKNOWN
     Route: 065
     Dates: start: 20140203, end: 20140203
  2. CARBOPLATINE [Concomitant]
     Active Substance: CARBOPLATIN
     Indication: LUNG ADENOCARCINOMA
     Dosage: 350 MG, UNKNOWN
     Dates: start: 20140113, end: 20140113
  3. ALIMTA [Suspect]
     Active Substance: PEMETREXED DISODIUM
     Indication: LUNG ADENOCARCINOMA
     Dosage: 875 MG, UNKNOWN
     Route: 065
     Dates: start: 20140113, end: 20140113
  4. VITAMIN B12 [Concomitant]
     Active Substance: CYANOCOBALAMIN
     Route: 030
  5. FOLIC ACID. [Concomitant]
     Active Substance: FOLIC ACID
  6. ALIMTA [Suspect]
     Active Substance: PEMETREXED DISODIUM
     Dosage: 425 MG, UNKNOWN
     Route: 065
     Dates: start: 20140224, end: 20140318
  7. DEXAMETHASON                       /00016001/ [Concomitant]
     Active Substance: DEXAMETHASONE
     Dosage: 4 MG, BID
  8. CARBOPLATINE [Concomitant]
     Active Substance: CARBOPLATIN
     Dosage: 340 MG, UNKNOWN
     Dates: start: 20140203, end: 20140203

REACTIONS (3)
  - Renal failure acute [Unknown]
  - Metastases to the mediastinum [Fatal]
  - Metastases to meninges [Fatal]
